FAERS Safety Report 21854705 (Version 1)
Quarter: 2023Q1

REPORT INFORMATION
  Report Type: Report from Study
  Country: GB (occurrence: None)
  Receive Date: 20230112
  Receipt Date: 20230112
  Transmission Date: 20230417
  Serious: Yes (Other)
  Sender: FDA-Public Use
  Company Number: GB-Merck Healthcare KGaA-9376085

PATIENT
  Sex: Female

DRUGS (2)
  1. MAVENCLAD [Suspect]
     Active Substance: CLADRIBINE
     Indication: Multiple sclerosis
     Dosage: YEAR ONE WEEK ONE THERAPY:TWO TABLETS ON DAYS 1 AND ONE TABLET ON DAYS 2 TO 5
     Route: 048
     Dates: start: 20221031
  2. MAVENCLAD [Suspect]
     Active Substance: CLADRIBINE
     Dosage: YEAR ONE WEEK TWO THERAPY:TWO TABLETS ON DAYS 1 AND ONE TABLET ON DAYS 2 TO 5
     Route: 048

REACTIONS (2)
  - Bell^s palsy [Unknown]
  - Herpes zoster [Unknown]
